FAERS Safety Report 17431278 (Version 2)
Quarter: 2020Q1

REPORT INFORMATION
  Report Type: Spontaneous
  Country: RO (occurrence: RO)
  Receive Date: 20200218
  Receipt Date: 20200310
  Transmission Date: 20200409
  Serious: Yes (Death, Hospitalization, Other)
  Sender: FDA-Public Use
  Company Number: RO-AMGEN-ROUSP2020025643

PATIENT
  Age: 70 Year
  Sex: Male
  Weight: 89 kg

DRUGS (5)
  1. MERONEM [Concomitant]
     Active Substance: MEROPENEM
     Dosage: 20 GRAM, QD
     Route: 065
     Dates: start: 20200125, end: 20200208
  2. KYPROLIS [Suspect]
     Active Substance: CARFILZOMIB
     Dosage: 112 MILLIGRAM
     Route: 042
     Dates: start: 202001, end: 20200130
  3. KYPROLIS [Suspect]
     Active Substance: CARFILZOMIB
     Indication: PLASMA CELL MYELOMA
     Dosage: 40 MILLIGRAM
     Route: 042
     Dates: start: 20200122, end: 202001
  4. DEXAMETHASONE. [Concomitant]
     Active Substance: DEXAMETHASONE
     Dosage: 16 MILLIGRAM 1, 2, 8, 9
     Route: 065
  5. FLUCONAZOLE. [Concomitant]
     Active Substance: FLUCONAZOLE
     Dosage: 100 MILLIGRAM, QD
     Route: 065
     Dates: start: 20200125, end: 20200208

REACTIONS (1)
  - Atrial fibrillation [Fatal]

NARRATIVE: CASE EVENT DATE: 20200128
